FAERS Safety Report 13301946 (Version 2)
Quarter: 2017Q1

REPORT INFORMATION
  Report Type: Spontaneous
  Country: IT (occurrence: IT)
  Receive Date: 20170307
  Receipt Date: 20170309
  Transmission Date: 20170428
  Serious: Yes (Other)
  Sender: FDA-Public Use
  Company Number: IT-PFIZER INC-2017098062

PATIENT
  Age: 58 Year
  Sex: Female

DRUGS (5)
  1. EFFEXOR XR [Suspect]
     Active Substance: VENLAFAXINE HYDROCHLORIDE
     Dosage: 3 DF, TOTAL
     Route: 048
     Dates: start: 20161031, end: 20161031
  2. TAVOR (LORAZEPAM) [Suspect]
     Active Substance: LORAZEPAM
     Dosage: 2 DF, TOTAL
     Route: 048
     Dates: start: 20161031, end: 20161031
  3. CIPRALEX [Suspect]
     Active Substance: ESCITALOPRAM OXALATE
     Dosage: 60 DF, TOTAL
     Route: 048
     Dates: start: 20161031, end: 20161031
  4. ABILIFY [Suspect]
     Active Substance: ARIPIPRAZOLE
     Dosage: 0.5 DF, TOTAL
     Route: 048
     Dates: start: 20161031, end: 20161031
  5. TALOFEN [Suspect]
     Active Substance: PROMAZINE HYDROCHLORIDE
     Dosage: 5 GTT, TOTAL
     Route: 048
     Dates: start: 20161031, end: 20161031

REACTIONS (3)
  - Movement disorder [Unknown]
  - Bradyphrenia [Unknown]
  - Drug abuse [Unknown]

NARRATIVE: CASE EVENT DATE: 20161031
